FAERS Safety Report 4751076-3 (Version None)
Quarter: 2005Q3

REPORT INFORMATION
  Report Type: 
  Country: None (occurrence: None)
  Receive Date: 20050822
  Receipt Date: 20050812
  Transmission Date: 20060218
  Serious: No
  Sender: FDA-Public Use
  Company Number: 2005-131577-NL

PATIENT
  Age: 40 Year
  Sex: Female

DRUGS (2)
  1. VECURONIUM BROMIDE [Suspect]
     Dosage: 6 MG , INTRAVENOUS (NOS)
     Route: 042
     Dates: start: 20050802, end: 20050802
  2. THIOPENTAL SODIUM [Suspect]
     Dosage: 250 MG ONCE, INTRAVENOUS (NOS)
     Route: 042
     Dates: start: 20050802, end: 20050802

REACTIONS (1)
  - ANAPHYLACTIC SHOCK [None]
